FAERS Safety Report 26203560 (Version 1)
Quarter: 2025Q4

REPORT INFORMATION
  Report Type: Spontaneous
  Country: CN (occurrence: CN)
  Receive Date: 20251226
  Receipt Date: 20251226
  Transmission Date: 20260117
  Serious: Yes (Other)
  Sender: MERCK SHARP & DOHME LLC
  Company Number: CN-009507513-2362996

PATIENT
  Age: 50 Year
  Sex: Male

DRUGS (1)
  1. CILASTATIN SODIUM\IMIPENEM [Suspect]
     Active Substance: CILASTATIN SODIUM\IMIPENEM
     Indication: Abdominal infection
     Dosage: 2 G, Q4D
     Route: 041
     Dates: start: 20251215, end: 20251218

REACTIONS (4)
  - Seizure [Unknown]
  - Epilepsy [Unknown]
  - Delirium [Unknown]
  - Overdose [Unknown]

NARRATIVE: CASE EVENT DATE: 20251215
